FAERS Safety Report 8792868 (Version 2)
Quarter: 2012Q4

REPORT INFORMATION
  Report Type: 
  Country: CA (occurrence: CA)
  Receive Date: 20120918
  Receipt Date: 20120924
  Transmission Date: 20130627
  Serious: Yes (Other)
  Sender: FDA-Public Use
  Company Number: CA-ASTRAZENECA-2012SE69716

PATIENT
  Age: 88 Year
  Sex: Male

DRUGS (1)
  1. ZOLADEX [Suspect]
     Indication: PROSTATE CANCER
     Route: 058
     Dates: start: 20090304

REACTIONS (4)
  - Neoplasm progression [Unknown]
  - Weight decreased [Recovering/Resolving]
  - Lethargy [Recovering/Resolving]
  - Renal pain [Recovering/Resolving]
